FAERS Safety Report 6962952-5 (Version None)
Quarter: 2010Q3

REPORT INFORMATION
  Report Type: 
  Country: None (occurrence: None)
  Receive Date: 20100902
  Receipt Date: 20100823
  Transmission Date: 20110219
  Serious: Yes (Hospitalization, Other)
  Sender: FDA-Public Use
  Company Number: DE-ROCHE-712302

PATIENT
  Sex: Female

DRUGS (2)
  1. AVASTIN [Suspect]
     Dosage: 5 CYCLES COMPLETED
     Route: 065
     Dates: start: 20100101
  2. TAXOL [Suspect]
     Dosage: TOGETHER WITH AVASTIN
     Route: 065
     Dates: start: 20100101

REACTIONS (2)
  - ATRIAL FIBRILLATION [None]
  - CARDIAC FAILURE [None]
